FAERS Safety Report 6981031-4 (Version None)
Quarter: 2010Q3

REPORT INFORMATION
  Report Type: 
  Country: None (occurrence: None)
  Receive Date: 20100914
  Receipt Date: 20100906
  Transmission Date: 20110219
  Serious: Yes (Other)
  Sender: FDA-Public Use
  Company Number: GXKR2010IT10122

PATIENT
  Age: 77 Year
  Sex: Female

DRUGS (6)
  1. WARFARIN SODIUM [Suspect]
     Dosage: 35.0 MG, QW
  2. WARFARIN SODIUM [Interacting]
     Dosage: 22.5 MG, QW
  3. POTASSIUM CANRENOATE [Interacting]
     Indication: HYPOKALAEMIA
     Dosage: 50 MG/DAY
  4. FUROSEMIDE [Concomitant]
     Dosage: UNK
  5. BISOPROLOL [Concomitant]
     Dosage: UNK
  6. RAMIPRIL [Concomitant]

REACTIONS (3)
  - DRUG INTERACTION [None]
  - HAEMATOMA [None]
  - INTERNATIONAL NORMALISED RATIO INCREASED [None]
